FAERS Safety Report 8716358 (Version 2)
Quarter: 2013Q4

REPORT INFORMATION
  Report Type: Spontaneous
  Country: US (occurrence: US)
  Receive Date: 20120810
  Receipt Date: 20131101
  Transmission Date: 20140711
  Serious: No
  Sender: FDA-Public Use
  Company Number: US-009507513-1207USA008525

PATIENT
  Sex: Female

DRUGS (6)
  1. PEGINTRON [Suspect]
     Indication: CHRONIC HEPATITIS C
     Dosage: 120 MICROGRAM, QW
     Route: 058
     Dates: start: 201205
  2. INCIVEK [Concomitant]
  3. RIBAPAK [Concomitant]
  4. CELEBREX [Concomitant]
  5. ZOLPIDEM TARTRATE [Concomitant]
  6. LACTULOSE [Concomitant]

REACTIONS (2)
  - Dyspepsia [Unknown]
  - Depressed mood [Unknown]
